FAERS Safety Report 6972365-8 (Version None)
Quarter: 2010Q3

REPORT INFORMATION
  Report Type: 
  Country: None (occurrence: None)
  Receive Date: 20100909
  Receipt Date: 20100905
  Transmission Date: 20110219
  Serious: Yes (Hospitalization)
  Sender: FDA-Public Use
  Company Number: PHHY2010NL36815

PATIENT
  Sex: Male

DRUGS (7)
  1. COMTAN [Suspect]
     Dosage: UNK
  2. SINEMET [Concomitant]
  3. NEXIUM [Concomitant]
  4. LORAZEPAM [Concomitant]
  5. FUROSEMIDE [Concomitant]
  6. ISOSORBIDE MONONITRATE [Concomitant]
  7. LACTULOSE [Concomitant]

REACTIONS (5)
  - CALCINOSIS [None]
  - DYSPHAGIA [None]
  - OESOPHAGEAL DILATATION [None]
  - OESOPHAGEAL SPASM [None]
  - OESOPHAGEAL STENOSIS [None]
